FAERS Safety Report 8536093-X (Version None)
Quarter: 2012Q3

REPORT INFORMATION
  Report Type: 
  Country: None (occurrence: None)
  Receive Date: 20120725
  Receipt Date: 20120723
  Transmission Date: 20120928
  Serious: Yes (Other)
  Sender: FDA-Public Use
  Company Number: US-SANOFI-AVENTIS-2012SA015646

PATIENT
  Age: 65 Year
  Sex: Female

DRUGS (5)
  1. MULTAQ [Suspect]
     Route: 048
     Dates: end: 20120101
  2. MULTAQ [Suspect]
     Indication: ATRIAL FIBRILLATION
     Route: 048
  3. COREG [Concomitant]
  4. AZOR [Concomitant]
  5. METOPROLOL SUCCINATE [Concomitant]

REACTIONS (5)
  - ATRIAL FIBRILLATION [None]
  - DISTURBANCE IN ATTENTION [None]
  - PAIN [None]
  - FATIGUE [None]
  - DIZZINESS [None]
